FAERS Safety Report 12622697 (Version 2)
Quarter: 2016Q3

REPORT INFORMATION
  Report Type: Report from Study
  Country: US (occurrence: US)
  Receive Date: 20160804
  Receipt Date: 20160909
  Transmission Date: 20161109
  Serious: Yes (Hospitalization)
  Sender: FDA-Public Use
  Company Number: US-JNJFOC-20160801130

PATIENT
  Sex: Male

DRUGS (11)
  1. TAMSULOSIN [Concomitant]
     Active Substance: TAMSULOSIN
  2. METOPROLOL. [Concomitant]
     Active Substance: METOPROLOL
  3. ACYCLOVIR. [Concomitant]
     Active Substance: ACYCLOVIR
  4. IMBRUVICA [Suspect]
     Active Substance: IBRUTINIB
     Indication: LYMPHOCYTIC LEUKAEMIA
     Route: 048
     Dates: start: 201603
  5. ATORVASTATIN [Concomitant]
     Active Substance: ATORVASTATIN
  6. KLOR-CON [Concomitant]
     Active Substance: POTASSIUM CHLORIDE
  7. GABAPENTIN. [Concomitant]
     Active Substance: GABAPENTIN
  8. FISH OIL W/TOCOPHEROL [Concomitant]
  9. PRADAXA [Concomitant]
     Active Substance: DABIGATRAN ETEXILATE MESYLATE
  10. LEVOTHYROXINE. [Concomitant]
     Active Substance: LEVOTHYROXINE
  11. FUROSEMIDE. [Concomitant]
     Active Substance: FUROSEMIDE

REACTIONS (4)
  - Off label use [Recovered/Resolved]
  - Incorrect dose administered [Recovered/Resolved]
  - Fall [Unknown]
  - Laceration [Unknown]

NARRATIVE: CASE EVENT DATE: 2016
